FAERS Safety Report 25702942 (Version 3)
Quarter: 2025Q4

REPORT INFORMATION
  Report Type: Report from Study
  Country: KR (occurrence: KR)
  Receive Date: 20250819
  Receipt Date: 20251116
  Transmission Date: 20260117
  Serious: Yes (Death)
  Sender: ABBVIE
  Company Number: KR-PFIZER INC-PV202500098478

PATIENT
  Age: 82 Year
  Sex: Male
  Weight: 75 kg

DRUGS (29)
  1. AVIBACTAM SODIUM\CEFTAZIDIME [Suspect]
     Active Substance: AVIBACTAM SODIUM\CEFTAZIDIME
     Indication: Pneumonia
     Dosage: TIME INTERVAL: 0.33333333 DAYS: 1.25 G, 3X/DAY, INJECTION?37.5 G
     Route: 042
     Dates: start: 20250802, end: 20250811
  2. TAPOCIN [Concomitant]
     Indication: Infection
     Dosage: UNK
     Route: 042
     Dates: start: 20250804, end: 20250805
  3. ACETYLCYSTEINE [Concomitant]
     Active Substance: ACETYLCYSTEINE
     Indication: Infection
     Dosage: 600 MG/6 ML
     Route: 042
     Dates: start: 20250811, end: 20250811
  4. FEXUCLUE [Concomitant]
     Indication: Prophylaxis
     Dosage: UNK
     Route: 048
     Dates: start: 20250806, end: 20250808
  5. REJUVENEX [Concomitant]
     Indication: Prophylaxis
     Dosage: 10 G, ROUTE: EXT
     Dates: start: 20250807, end: 20250807
  6. NAFAMOSTAT MESYLATE [Concomitant]
     Active Substance: NAFAMOSTAT MESYLATE
     Indication: Prophylaxis
     Dosage: UNK
     Route: 042
     Dates: start: 20250802
  7. ETOMIDATE [Concomitant]
     Active Substance: ETOMIDATE
     Indication: Anaesthesia
     Dosage: UNK
     Route: 042
     Dates: start: 20250802, end: 20250802
  8. TRAMADOL HYDROCHLORIDE [Concomitant]
     Active Substance: TRAMADOL HYDROCHLORIDE
     Indication: Pain
     Dosage: UNK
     Route: 042
     Dates: start: 20250802, end: 20250802
  9. LASIX [Concomitant]
     Active Substance: FUROSEMIDE
     Indication: Cardiac failure
     Dosage: 20 MG/2 ML
     Route: 042
     Dates: start: 20250802, end: 20250802
  10. CRESTOR [Concomitant]
     Active Substance: ROSUVASTATIN CALCIUM
     Indication: Prophylaxis
     Dosage: UNK
     Route: 048
     Dates: start: 20250802, end: 20250802
  11. CRESTOR [Concomitant]
     Active Substance: ROSUVASTATIN CALCIUM
     Indication: Prophylaxis
     Dosage: UNK
     Route: 048
     Dates: start: 20250805, end: 20250810
  12. PULMICAN [Concomitant]
     Indication: Infection
     Dosage: NEBULIZER, 0.5 ML/2 ML, ROUTE: EXT
     Dates: start: 20250807
  13. MUCOMYST [Concomitant]
     Active Substance: ACETYLCYSTEINE
     Indication: Infection
     Dosage: SOL, 80 MG/4 ML, ROUTE: EXT
     Dates: start: 20250807
  14. IPRATROPIUM BROMIDE [Concomitant]
     Active Substance: IPRATROPIUM BROMIDE
     Indication: Infection
     Dosage: UNK
     Route: 055
     Dates: start: 20250807, end: 20250811
  15. PENIRAMIN [Concomitant]
     Indication: Prophylaxis
     Dosage: 4 MG/2 ML
     Route: 042
     Dates: start: 20250802, end: 20250806
  16. PENIRAMIN [Concomitant]
     Indication: Prophylaxis
     Dosage: 4 MG/2 ML
     Route: 042
     Dates: start: 20250808, end: 20250809
  17. COSOPT [Concomitant]
     Active Substance: DORZOLAMIDE HYDROCHLORIDE\TIMOLOL MALEATE
     Indication: Glaucoma
     Dosage: 5 ML, OPTH
     Route: 047
     Dates: start: 20250806
  18. NORPIN [Concomitant]
     Indication: Cardiac failure
     Dosage: 20 MG/20 ML
     Route: 042
     Dates: start: 20250802, end: 20250802
  19. NORPIN [Concomitant]
     Indication: Cardiac failure
     Dosage: 20 MG/20 ML
     Route: 042
     Dates: start: 20250810, end: 20250810
  20. NORPIN [Concomitant]
     Indication: Cardiac failure
     Dosage: 20 MG/20 ML
     Route: 042
     Dates: start: 20250808, end: 20250808
  21. NORPIN [Concomitant]
     Indication: Cardiac failure
     Dosage: 20 MG/20 ML
     Route: 042
     Dates: start: 20250805, end: 20250805
  22. MEPERIDINE [Concomitant]
     Active Substance: MEPERIDINE
     Indication: Pain prophylaxis
     Dosage: 25 MG/0.5 ML
     Route: 042
     Dates: start: 20250811, end: 20250811
  23. MEPERIDINE [Concomitant]
     Active Substance: MEPERIDINE
     Indication: Pain prophylaxis
     Dosage: 25 MG/0.5 ML
     Route: 042
     Dates: start: 20250808, end: 20250808
  24. PANTOPRAZOLE SODIUM [Concomitant]
     Active Substance: PANTOPRAZOLE SODIUM
     Indication: Prophylaxis
     Dosage: UNK
     Route: 042
     Dates: start: 20250803, end: 20250811
  25. TANAMIN [Concomitant]
     Indication: Cardiac failure
     Dosage: UNK
     Route: 048
     Dates: start: 20250806, end: 20250811
  26. XALATAN [Concomitant]
     Active Substance: LATANOPROST
     Indication: Glaucoma
     Dosage: ROUTE: EXT
     Route: 065
     Dates: start: 20250806
  27. EDOXABAN TOSYLATE [Concomitant]
     Active Substance: EDOXABAN TOSYLATE
     Indication: Cardiac failure
     Dosage: UNK
     Route: 048
     Dates: start: 20250731, end: 20250802
  28. HYDROCORTISONE SODIUM SUCCINATE [Concomitant]
     Active Substance: HYDROCORTISONE SODIUM SUCCINATE
     Indication: Infection
     Dosage: UNK
     Route: 042
     Dates: start: 20250809, end: 20250811
  29. REMIFENTANIL [Concomitant]
     Active Substance: REMIFENTANIL
     Indication: Pain prophylaxis
     Dosage: UNK
     Route: 042
     Dates: start: 20250802, end: 20250807

REACTIONS (1)
  - Multiple organ dysfunction syndrome [Fatal]

NARRATIVE: CASE EVENT DATE: 20250812
